FAERS Safety Report 9572423 (Version 2)
Quarter: 2013Q4

REPORT INFORMATION
  Report Type: Spontaneous
  Country: US (occurrence: US)
  Receive Date: 20131001
  Receipt Date: 20131001
  Transmission Date: 20140711
  Serious: No
  Sender: FDA-Public Use
  Company Number: US-PURDUE-USA-2012-0080834

PATIENT
  Sex: Female

DRUGS (1)
  1. BUTRANS [Suspect]
     Indication: PAIN
     Dosage: 10 MCG, Q1H
     Route: 062
     Dates: start: 20111206, end: 20120106

REACTIONS (9)
  - Haemoptysis [Unknown]
  - Drug withdrawal syndrome [Unknown]
  - Inappropriate schedule of drug administration [Unknown]
  - Tremor [Unknown]
  - Palpitations [Unknown]
  - Pain [Unknown]
  - Headache [Unknown]
  - Application site vesicles [Unknown]
  - Pyrexia [Unknown]
